FAERS Safety Report 26050904 (Version 1)
Quarter: 2025Q4

REPORT INFORMATION
  Report Type: Report from Study
  Country: CA (occurrence: CA)
  Receive Date: 20251116
  Receipt Date: 20251116
  Transmission Date: 20260118
  Serious: Yes (Hospitalization, Other)
  Sender: ABBVIE
  Company Number: CA-ABBVIE-6550351

PATIENT
  Sex: Male

DRUGS (1)
  1. LUPRON [Suspect]
     Active Substance: LEUPROLIDE ACETATE
     Indication: Prostate cancer
     Dosage: FORM STRENGTH:30MILLIGRAM, PRE-FILLED SYRINGE
     Route: 065
     Dates: start: 20210402

REACTIONS (2)
  - Glioblastoma [Unknown]
  - Seizure [Recovering/Resolving]
